FAERS Safety Report 26086844 (Version 2)
Quarter: 2025Q4

REPORT INFORMATION
  Report Type: Spontaneous
  Country: US (occurrence: US)
  Receive Date: 20251125
  Receipt Date: 20251128
  Transmission Date: 20260117
  Serious: Yes (Life-Threatening, Hospitalization)
  Sender: NOVARTIS
  Company Number: US-002147023-NVSC2025US181054

PATIENT
  Age: 42 Year
  Sex: Male
  Weight: 100 kg

DRUGS (1)
  1. KESIMPTA [Suspect]
     Active Substance: OFATUMUMAB
     Indication: Relapsing-remitting multiple sclerosis
     Dosage: 20 MG/KG, QMO
     Route: 058
     Dates: start: 202504

REACTIONS (6)
  - Myocardial infarction [Unknown]
  - Coronary artery thrombosis [Unknown]
  - Acute myocardial infarction [Recovered/Resolved]
  - Vomiting [Unknown]
  - Nausea [Unknown]
  - Troponin increased [Unknown]

NARRATIVE: CASE EVENT DATE: 20250920
